FAERS Safety Report 11317857 (Version 2)
Quarter: 2018Q1

REPORT INFORMATION
  Report Type: Spontaneous
  Country: TR (occurrence: TR)
  Receive Date: 20150728
  Receipt Date: 20180322
  Transmission Date: 20180508
  Serious: Yes (Hospitalization, Other)
  Sender: FDA-Public Use
  Company Number: TR-BAYER-2015-382935

PATIENT
  Age: 16 Year
  Sex: Female

DRUGS (6)
  1. MELOXICAM. [Concomitant]
     Active Substance: MELOXICAM
     Indication: IMMUNE TOLERANCE INDUCTION
  2. NAPROXEN SODIUM ({= 220 MG) [Suspect]
     Active Substance: NAPROXEN SODIUM
     Indication: ABDOMINAL PAIN
  3. NIMESULIDE [Suspect]
     Active Substance: NIMESULIDE
     Indication: IMMUNE TOLERANCE INDUCTION
  4. ACETYLSALICYLIC ACID (} 100 MG) [Suspect]
     Active Substance: ASPIRIN
     Indication: ABDOMINAL PAIN
     Dosage: 600 MG, BID
  5. ACETYLSALICYLIC ACID (} 100 MG) [Suspect]
     Active Substance: ASPIRIN
     Indication: IMMUNE TOLERANCE INDUCTION
     Dosage: 300 MG, BID
  6. FLURBIPROFEN. [Suspect]
     Active Substance: FLURBIPROFEN

REACTIONS (6)
  - Angioedema [None]
  - Rash macular [None]
  - Hypoaesthesia oral [None]
  - Off label use [None]
  - Abdominal pain [Recovered/Resolved]
  - Aspirin-exacerbated respiratory disease [Unknown]
